FAERS Safety Report 6644541-5 (Version None)
Quarter: 2010Q1

REPORT INFORMATION
  Report Type: 
  Country: None (occurrence: None)
  Receive Date: 20100317
  Receipt Date: 20100301
  Transmission Date: 20100710
  Serious: Yes (Other)
  Sender: FDA-Public Use
  Company Number: CTI_01122_2010

PATIENT
  Sex: Male

DRUGS (11)
  1. SPECTRACEF          (MEIACT MS (CEFDITOREN PIVOXIL)) [Suspect]
     Indication: CELLULITIS
     Dosage: (300 MG QD ORAL)
     Route: 048
     Dates: start: 20100129, end: 20100206
  2. SPECTRACEF          (MEIACT MS (CEFDITOREN PIVOXIL)) [Suspect]
     Indication: SKIN INFECTION
     Dosage: (300 MG QD ORAL)
     Route: 048
     Dates: start: 20100129, end: 20100206
  3. AMANTADINE HYDROCHLORIDE [Concomitant]
  4. DISTIGMINE BROMIDE [Concomitant]
  5. HERBAL PREPARATION [Concomitant]
  6. BENSERAZIDE HYDROCHLORIDE W/ LEVODOPA [Concomitant]
  7. MECOBALAMIN [Concomitant]
  8. CLONAZEPAM [Concomitant]
  9. PRAMIPEXOLE DIHYDROCHLORIDE [Concomitant]
  10. SODIUM POLYSTYRENE SULFONATE [Concomitant]
  11. MIDODRINE HYDROCHLORIDE [Concomitant]

REACTIONS (3)
  - BLOOD PRESSURE DECREASED [None]
  - HEADACHE [None]
  - LOSS OF CONSCIOUSNESS [None]
